FAERS Safety Report 8617455-9 (Version None)
Quarter: 2012Q3

REPORT INFORMATION
  Report Type: 
  Country: None (occurrence: None)
  Receive Date: 20120824
  Receipt Date: 20111024
  Transmission Date: 20120928
  Serious: No
  Sender: FDA-Public Use
  Company Number: US-ASTRAZENECA-2011SE64356

PATIENT
  Sex: Female

DRUGS (2)
  1. SYMBICORT [Suspect]
     Indication: ASTHMA
     Dosage: UNKNOWN FREQUENCY
     Route: 055
     Dates: start: 20070101
  2. STEROID [Concomitant]
     Dates: start: 20030101

REACTIONS (2)
  - SLEEP APNOEA SYNDROME [None]
  - DYSPNOEA [None]
